FAERS Safety Report 10075055 (Version 1)
Quarter: 2014Q2

REPORT INFORMATION
  Report Type: Spontaneous
  Country: US (occurrence: US)
  Receive Date: 20140414
  Receipt Date: 20140414
  Transmission Date: 20141212
  Serious: No
  Sender: FDA-Public Use
  Company Number: US-BIOGENIDEC-2014BI029096

PATIENT
  Age: 49 Year
  Sex: Female

DRUGS (5)
  1. TECFIDERA [Suspect]
     Indication: MULTIPLE SCLEROSIS
     Route: 048
  2. FIORICET [Concomitant]
  3. GABAPENTIN [Concomitant]
  4. HYDROCODONE-ACETAMINOPHEN [Concomitant]
  5. METAXALONE [Concomitant]

REACTIONS (2)
  - Cystitis [Unknown]
  - Urinary tract infection [Unknown]
